FAERS Safety Report 24167075 (Version 6)
Quarter: 2025Q2

REPORT INFORMATION
  Report Type: Report from Study
  Country: CA (occurrence: CA)
  Receive Date: 20240802
  Receipt Date: 20250521
  Transmission Date: 20250716
  Serious: Yes (Hospitalization, Other)
  Sender: TAKEDA
  Company Number: CA-TAKEDA-2015TUS013625

PATIENT
  Age: 43 Year
  Sex: Female

DRUGS (18)
  1. VEDOLIZUMAB [Suspect]
     Active Substance: VEDOLIZUMAB
     Indication: Colitis ulcerative
  2. VEDOLIZUMAB [Suspect]
     Active Substance: VEDOLIZUMAB
     Dosage: 300 MILLIGRAM, Q4WEEKS
     Dates: start: 20160530
  3. VEDOLIZUMAB [Suspect]
     Active Substance: VEDOLIZUMAB
  4. VEDOLIZUMAB [Suspect]
     Active Substance: VEDOLIZUMAB
  5. VEDOLIZUMAB [Suspect]
     Active Substance: VEDOLIZUMAB
  6. VEDOLIZUMAB [Suspect]
     Active Substance: VEDOLIZUMAB
  7. VEDOLIZUMAB [Suspect]
     Active Substance: VEDOLIZUMAB
  8. VEDOLIZUMAB [Suspect]
     Active Substance: VEDOLIZUMAB
  9. VEDOLIZUMAB [Suspect]
     Active Substance: VEDOLIZUMAB
  10. Salofalk [Concomitant]
     Dosage: 100 MILLIGRAM, BID
     Dates: start: 20100201
  11. Salofalk [Concomitant]
     Dosage: 500 MILLIGRAM, BID
  12. PREDNISONE [Concomitant]
     Active Substance: PREDNISONE
  13. PANTOPRAZOLE [Concomitant]
     Active Substance: PANTOPRAZOLE
  14. SEPTRA DS [Concomitant]
     Active Substance: SULFAMETHOXAZOLE\TRIMETHOPRIM
  15. MESALAMINE [Concomitant]
     Active Substance: MESALAMINE
     Dosage: 4 GRAM, QD
  16. MORPHINE [Concomitant]
     Active Substance: MORPHINE
  17. VERSED [Concomitant]
     Active Substance: MIDAZOLAM HYDROCHLORIDE
  18. FENTANYL [Concomitant]
     Active Substance: FENTANYL

REACTIONS (7)
  - Colitis ulcerative [Recovering/Resolving]
  - Gastrointestinal haemorrhage [Unknown]
  - Autoimmune haemolytic anaemia [Recovered/Resolved]
  - Therapeutic response decreased [Unknown]
  - Diarrhoea [Unknown]
  - Abdominal tenderness [Unknown]
  - Constipation [Unknown]

NARRATIVE: CASE EVENT DATE: 20240716
